FAERS Safety Report 14375317 (Version 1)
Quarter: 2018Q1

REPORT INFORMATION
  Report Type: Spontaneous
  Country: US (occurrence: US)
  Receive Date: 20180111
  Receipt Date: 20180111
  Transmission Date: 20180509
  Serious: No
  Sender: FDA-Public Use
  Company Number: US-GLAXOSMITHKLINE-US2018003282

PATIENT
  Age: 67 Year
  Sex: Male

DRUGS (7)
  1. BREO ELLIPTA [Concomitant]
     Active Substance: FLUTICASONE FUROATE\VILANTEROL TRIFENATATE
  2. PANTOPRAZOLE [Concomitant]
     Active Substance: PANTOPRAZOLE
  3. DILTIAZEM XR [Concomitant]
     Active Substance: DILTIAZEM
  4. LOSARTAN. [Concomitant]
     Active Substance: LOSARTAN
  5. NUCALA [Suspect]
     Active Substance: MEPOLIZUMAB
     Indication: EOSINOPHIL COUNT INCREASED
     Dosage: 100 MG, CYC
     Route: 042
     Dates: start: 201703
  6. ATORVASTATIN [Concomitant]
     Active Substance: ATORVASTATIN
  7. PIOGLITAZONE. [Concomitant]
     Active Substance: PIOGLITAZONE

REACTIONS (3)
  - Back injury [Unknown]
  - Back pain [Not Recovered/Not Resolved]
  - Product use in unapproved indication [Unknown]

NARRATIVE: CASE EVENT DATE: 201703
